FAERS Safety Report 15524651 (Version 2)
Quarter: 2018Q4

REPORT INFORMATION
  Report Type: Report from Study
  Country: None (occurrence: BE)
  Receive Date: 20181019
  Receipt Date: 20181116
  Transmission Date: 20190205
  Serious: Yes (Hospitalization)
  Sender: FDA-Public Use
  Company Number: BE-ABBVIE-18P-013-2516764-00

PATIENT
  Age: 80 Year
  Sex: Male
  Weight: 60 kg

DRUGS (45)
  1. ABT-199 [Suspect]
     Active Substance: VENETOCLAX
     Indication: CHRONIC LYMPHOCYTIC LEUKAEMIA
     Route: 048
     Dates: start: 20161116, end: 20161122
  2. ABT-199 [Suspect]
     Active Substance: VENETOCLAX
     Route: 048
     Dates: start: 20161123, end: 20161129
  3. ABT-199 [Suspect]
     Active Substance: VENETOCLAX
     Route: 048
     Dates: start: 20161228, end: 20180925
  4. COZAAR [Concomitant]
     Active Substance: LOSARTAN POTASSIUM
     Indication: HYPERTENSION
     Route: 048
     Dates: end: 20161124
  5. SOLU-CORTEF [Concomitant]
     Active Substance: HYDROCORTISONE SODIUM SUCCINATE
     Indication: IMMUNOGLOBULIN THERAPY
     Route: 040
     Dates: start: 20170930, end: 20170930
  6. SOLU-CORTEF [Concomitant]
     Active Substance: HYDROCORTISONE SODIUM SUCCINATE
     Indication: PROPHYLAXIS
     Route: 042
     Dates: start: 20180221
  7. ZYRTEC [Concomitant]
     Active Substance: CETIRIZINE HYDROCHLORIDE
     Route: 048
     Dates: start: 20170802, end: 20170802
  8. ABT-199 [Suspect]
     Active Substance: VENETOCLAX
     Route: 048
     Dates: start: 20161221, end: 20161227
  9. ABT-199 [Suspect]
     Active Substance: VENETOCLAX
     Route: 048
     Dates: start: 20180926
  10. ALLOPURINOL. [Concomitant]
     Active Substance: ALLOPURINOL
     Indication: PROPHYLAXIS
     Route: 048
     Dates: start: 20161116
  11. DAFALGAN [Concomitant]
     Active Substance: ACETAMINOPHEN
     Indication: UPPER RESPIRATORY TRACT INFECTION
     Route: 048
     Dates: start: 20161117, end: 20161117
  12. DAFALGAN [Concomitant]
     Active Substance: ACETAMINOPHEN
     Indication: INFUSION RELATED REACTION
     Route: 048
     Dates: start: 20161116, end: 20161116
  13. ZYRTEC [Concomitant]
     Active Substance: CETIRIZINE HYDROCHLORIDE
     Indication: PRURITUS
     Route: 048
     Dates: start: 20161130
  14. ZYRTEC [Concomitant]
     Active Substance: CETIRIZINE HYDROCHLORIDE
     Route: 048
     Dates: start: 20161214, end: 20161214
  15. ANTI-ITCH CREAM (FURTHER UNSPECIFIED) [Concomitant]
     Indication: PRURITUS
     Route: 061
     Dates: start: 20170301
  16. UNI DIAMICRON [Concomitant]
     Active Substance: GLICLAZIDE
     Indication: DIABETES MELLITUS
     Route: 048
     Dates: start: 20181001
  17. UNI DIAMICRON [Concomitant]
     Active Substance: GLICLAZIDE
     Route: 048
     Dates: start: 20180926, end: 20180930
  18. RASBURICASE [Concomitant]
     Active Substance: RASBURICASE
     Indication: PROPHYLAXIS
     Route: 042
     Dates: start: 20161116, end: 20161116
  19. NORMAL SALINE SOLUTION (0.9% SODIUM CHLORIDE) [Concomitant]
     Route: 042
     Dates: start: 20161220, end: 20161221
  20. RANITIDINE. [Concomitant]
     Active Substance: RANITIDINE
     Indication: PROPHYLAXIS
     Route: 048
     Dates: start: 20080221
  21. FOLAVIT [Concomitant]
     Active Substance: FOLIC ACID
     Indication: VITAMIN SUPPLEMENTATION
     Route: 048
     Dates: start: 20080221
  22. SOLU-CORTEF [Concomitant]
     Active Substance: HYDROCORTISONE SODIUM SUCCINATE
     Indication: INFUSION RELATED REACTION
     Route: 042
     Dates: start: 20161207, end: 20161207
  23. DAFALGAN [Concomitant]
     Active Substance: ACETAMINOPHEN
     Indication: IMMUNOGLOBULIN THERAPY
     Route: 048
     Dates: start: 20161207, end: 20161207
  24. DAFALGAN [Concomitant]
     Active Substance: ACETAMINOPHEN
     Indication: MUSCLE HAEMORRHAGE
     Route: 048
     Dates: start: 20170320
  25. ZOMETA [Concomitant]
     Active Substance: ZOLEDRONIC ACID
     Indication: OSTEOPENIA
     Route: 042
     Dates: start: 20150923
  26. RASBURICASE [Concomitant]
     Active Substance: RASBURICASE
     Route: 042
     Dates: start: 20161123, end: 20161123
  27. ZYRTEC [Concomitant]
     Active Substance: CETIRIZINE HYDROCHLORIDE
     Route: 048
     Dates: start: 20171117, end: 20171117
  28. ZYRTEC [Concomitant]
     Active Substance: CETIRIZINE HYDROCHLORIDE
     Route: 048
     Dates: start: 20180221
  29. FLAMIGEL [Concomitant]
     Indication: SKIN INJURY
     Route: 061
     Dates: start: 20180130
  30. FLAMINAL HYDRO [Concomitant]
     Indication: BRACHYTHERAPY
  31. NORMAL SALINE SOLUTION (0.9% SODIUM CHLORIDE) [Concomitant]
     Indication: PROPHYLAXIS
     Route: 042
     Dates: start: 20161115, end: 20161116
  32. NORMAL SALINE SOLUTION (0.9% SODIUM CHLORIDE) [Concomitant]
     Route: 042
     Dates: start: 20161129, end: 20161130
  33. TAMSULOSINE [Concomitant]
     Active Substance: TAMSULOSIN HYDROCHLORIDE
     Indication: URINARY RETENTION
     Route: 048
     Dates: start: 20161128
  34. COZAAR [Concomitant]
     Active Substance: LOSARTAN POTASSIUM
     Route: 048
     Dates: start: 20170927
  35. SOLU-CORTEF [Concomitant]
     Active Substance: HYDROCORTISONE SODIUM SUCCINATE
     Indication: PLATELET TRANSFUSION
     Route: 040
     Dates: start: 20170802, end: 20170802
  36. ABT-199 [Suspect]
     Active Substance: VENETOCLAX
     Route: 048
     Dates: start: 20161130, end: 20161206
  37. NORMAL SALINE SOLUTION (0.9% SODIUM CHLORIDE) [Concomitant]
     Route: 042
     Dates: start: 20161213, end: 20161214
  38. NORMAL SALINE SOLUTION (0.9% SODIUM CHLORIDE) [Concomitant]
     Route: 042
     Dates: start: 20161227, end: 20161228
  39. ISOBETADINE GEL [Concomitant]
     Indication: SQUAMOUS CELL CARCINOMA OF HEAD AND NECK
     Dosage: 1 APPLICATION
     Route: 061
     Dates: start: 20171129
  40. NORMAL SALINE SOLUTION (0.9% SODIUM CHLORIDE) [Concomitant]
     Route: 042
     Dates: start: 20161122, end: 20161123
  41. NORMAL SALINE SOLUTION (0.9% SODIUM CHLORIDE) [Concomitant]
     Route: 042
     Dates: start: 20161206, end: 20161206
  42. INTRAVENOUS IMMUNOGLOBULIN (MULTIGAM) [Concomitant]
     Indication: HYPOGAMMAGLOBULINAEMIA
     Route: 042
     Dates: start: 20131030
  43. ZYRTEC [Concomitant]
     Active Substance: CETIRIZINE HYDROCHLORIDE
     Route: 048
     Dates: start: 20170930, end: 20170930
  44. VITAPANTOL [Concomitant]
     Indication: EPISTAXIS
     Route: 061
     Dates: start: 20180208
  45. FLAMINAL HYDRO [Concomitant]
     Indication: SKIN INJURY
     Route: 061
     Dates: start: 20180130

REACTIONS (1)
  - Epistaxis [Recovered/Resolved]

NARRATIVE: CASE EVENT DATE: 20181009
